FAERS Safety Report 19370282 (Version 2)
Quarter: 2021Q3

REPORT INFORMATION
  Report Type: Report from Study
  Country: US (occurrence: US)
  Receive Date: 20210603
  Receipt Date: 20210928
  Transmission Date: 20211014
  Serious: Yes (Hospitalization, Other)
  Sender: FDA-Public Use
  Company Number: US-TAKEDA-2021TUS030153

PATIENT
  Sex: Female
  Weight: 44 kg

DRUGS (28)
  1. EPINEPHRINE. [Concomitant]
     Active Substance: EPINEPHRINE
  2. PREDNISONE. [Concomitant]
     Active Substance: PREDNISONE
  3. DIPHENHYDRAMINE. [Concomitant]
     Active Substance: DIPHENHYDRAMINE
  4. WIXELA INHUB [Concomitant]
     Active Substance: FLUTICASONE PROPIONATE\SALMETEROL XINAFOATE
  5. TRIAMCINOLONE [Concomitant]
     Active Substance: TRIAMCINOLONE
  6. NORCO [Concomitant]
     Active Substance: ACETAMINOPHEN\HYDROCODONE BITARTRATE
  7. FERROUS SULFATE. [Concomitant]
     Active Substance: FERROUS SULFATE
  8. VITAMIN D2 [Concomitant]
     Active Substance: ERGOCALCIFEROL
  9. CLONAZEPAM. [Concomitant]
     Active Substance: CLONAZEPAM
  10. GUAIFENESIN?DM NR [Concomitant]
     Active Substance: DEXTROMETHORPHAN HYDROBROMIDE\GUAIFENESIN
  11. CUVITRU [Suspect]
     Active Substance: HUMAN IMMUNOGLOBULIN G
     Indication: IMMUNODEFICIENCY COMMON VARIABLE
     Dosage: 10 GRAM, Q2WEEKS
     Route: 058
     Dates: start: 20200502
  12. METHOCARBAMOL. [Concomitant]
     Active Substance: METHOCARBAMOL
  13. SPIRIVA [Concomitant]
     Active Substance: TIOTROPIUM BROMIDE MONOHYDRATE
  14. ASPIRIN (E.C.) [Concomitant]
     Active Substance: ASPIRIN
  15. DOCUSATE [Concomitant]
     Active Substance: DOCUSATE
  16. HYDROXYCHLOROQUINE [Concomitant]
     Active Substance: HYDROXYCHLOROQUINE
  17. ADVAIR HFA [Concomitant]
     Active Substance: FLUTICASONE PROPIONATE\SALMETEROL XINAFOATE
  18. ACETAMINOPHEN. [Concomitant]
     Active Substance: ACETAMINOPHEN
  19. LMX4 [Concomitant]
     Active Substance: LIDOCAINE
  20. IPRATROPIUM/ALBUTEROL [Concomitant]
     Active Substance: ALBUTEROL\IPRATROPIUM
  21. OXYGEN. [Concomitant]
     Active Substance: OXYGEN
  22. MONTELUKAST [Concomitant]
     Active Substance: MONTELUKAST SODIUM
  23. SERTRALINE [Concomitant]
     Active Substance: SERTRALINE HYDROCHLORIDE
  24. ALBUTEROL. [Concomitant]
     Active Substance: ALBUTEROL
  25. ROSUVASTATIN. [Concomitant]
     Active Substance: ROSUVASTATIN
  26. ALENDRONATE [Concomitant]
     Active Substance: ALENDRONATE SODIUM
  27. LEVOTHYROXINE. [Concomitant]
     Active Substance: LEVOTHYROXINE
  28. PROAIR HFA [Concomitant]
     Active Substance: ALBUTEROL SULFATE

REACTIONS (5)
  - Injection site pain [Unknown]
  - Chronic obstructive pulmonary disease [Unknown]
  - Swelling [Unknown]
  - Infection [Unknown]
  - Respiratory tract infection [Unknown]
